FAERS Safety Report 5623760-0 (Version None)
Quarter: 2008Q1

REPORT INFORMATION
  Report Type: 
  Country: None (occurrence: None)
  Receive Date: 20080207
  Receipt Date: 20080123
  Transmission Date: 20080703
  Serious: Yes (Other)
  Sender: FDA-Public Use
  Company Number: SPI200800030

PATIENT
  Sex: Female

DRUGS (1)
  1. AMITIZA [Suspect]
     Indication: CONSTIPATION
     Dosage: 24 MCG,ORAL
     Route: 048

REACTIONS (4)
  - CONVULSION [None]
  - HYPERHIDROSIS [None]
  - MOTOR DYSFUNCTION [None]
  - SENSATION OF PRESSURE [None]
